FAERS Safety Report 9459927 (Version 1)
Quarter: 2013Q3

REPORT INFORMATION
  Report Type: Spontaneous
  Country: IN (occurrence: None)
  Receive Date: 20130809
  Receipt Date: 20130809
  Transmission Date: 20140515
  Serious: Yes (Life-Threatening, Hospitalization)
  Sender: FDA-Public Use
  Company Number: 2013P1008506

PATIENT
  Age: 11 Month
  Sex: Male

DRUGS (1)
  1. AMLODIPINE [Suspect]
     Dosage: 15 MG; X6

REACTIONS (19)
  - Shock [None]
  - Toxicity to various agents [None]
  - Vomiting [None]
  - Lethargy [None]
  - Prerenal failure [None]
  - Cardiac failure congestive [None]
  - Pulmonary oedema [None]
  - Hyperglycaemia [None]
  - Respiratory distress [None]
  - Loss of consciousness [None]
  - Anaemia [None]
  - Metabolic acidosis [None]
  - Dialysis [None]
  - Pulse absent [None]
  - Alanine aminotransferase increased [None]
  - Aspartate aminotransferase increased [None]
  - Medication error [None]
  - Dyspnoea [None]
  - Incorrect dose administered [None]
